FAERS Safety Report 10611330 (Version 2)
Quarter: 2014Q4

REPORT INFORMATION
  Report Type: Spontaneous
  Country: FR (occurrence: FR)
  Receive Date: 20141126
  Receipt Date: 20141230
  Transmission Date: 20150529
  Serious: Yes (Life-Threatening, Hospitalization, Other)
  Sender: FDA-Public Use
  Company Number: FR-ELI_LILLY_AND_COMPANY-FR201411008792

PATIENT
  Age: 64 Year
  Sex: Male
  Weight: 62 kg

DRUGS (8)
  1. UMULINE [Suspect]
     Active Substance: INSULIN HUMAN
     Indication: TYPE 2 DIABETES MELLITUS
     Dosage: 8 IU, EACH EVENING
     Route: 058
  2. UMULINE [Suspect]
     Active Substance: INSULIN HUMAN
     Dosage: 100 IU, SINGLE
     Route: 058
     Dates: start: 20141118, end: 20141118
  3. KARDEGIC [Concomitant]
     Active Substance: ASPIRIN LYSINE
     Dosage: 1 DF, UNK
     Route: 048
  4. PANTOPRAZOLE [Concomitant]
     Active Substance: PANTOPRAZOLE SODIUM
     Dosage: 20 MG, UNK
  5. RILMENIDINE [Concomitant]
     Active Substance: RILMENIDINE
     Dosage: 1 DF, UNK
     Route: 048
  6. NOVONORM [Concomitant]
     Active Substance: REPAGLINIDE
     Indication: TYPE 2 DIABETES MELLITUS
     Dosage: 2 MG, TID
  7. LOXEN [Concomitant]
     Active Substance: NICARDIPINE HYDROCHLORIDE
     Dosage: 2 DF, UNK
     Route: 048
  8. REPAGLINIDE. [Concomitant]
     Active Substance: REPAGLINIDE
     Dosage: 2 MG, UNK

REACTIONS (6)
  - Hypoglycaemic coma [Recovered/Resolved]
  - Suicide attempt [Recovered/Resolved]
  - Incorrect dose administered [Unknown]
  - Glycosylated haemoglobin increased [Unknown]
  - Hypoglycaemic seizure [Recovered/Resolved]
  - Blood creatinine increased [Unknown]

NARRATIVE: CASE EVENT DATE: 20141118
